FAERS Safety Report 20031380 (Version 1)
Quarter: 2021Q4

REPORT INFORMATION
  Report Type: Report from Study
  Country: US (occurrence: US)
  Receive Date: 20211103
  Receipt Date: 20211103
  Transmission Date: 20220303
  Serious: Yes (Hospitalization)
  Sender: FDA-Public Use
  Company Number: US-BIOGEN-2021BI01062594

PATIENT
  Age: 34 Year
  Sex: Female

DRUGS (1)
  1. VUMERITY [Suspect]
     Active Substance: DIROXIMEL FUMARATE
     Indication: Multiple sclerosis
     Route: 065
     Dates: start: 20200903

REACTIONS (21)
  - Incontinence [Unknown]
  - Constipation [Unknown]
  - White blood cell count decreased [Unknown]
  - Stress [Unknown]
  - Abdominal discomfort [Unknown]
  - Fatigue [Unknown]
  - Inappropriate affect [Unknown]
  - Anxiety [Unknown]
  - Product dose omission in error [Unknown]
  - Micturition disorder [Unknown]
  - Bone pain [Unknown]
  - Back pain [Unknown]
  - Intentional product misuse [Unknown]
  - Abnormal faeces [Unknown]
  - Sunburn [Unknown]
  - Underdose [Unknown]
  - Malaise [Unknown]
  - Multiple sclerosis relapse [Not Recovered/Not Resolved]
  - Nausea [Unknown]
  - Vomiting [Unknown]
  - Feeling hot [Unknown]

NARRATIVE: CASE EVENT DATE: 20211001
